FAERS Safety Report 8461631-5 (Version None)
Quarter: 2012Q2

REPORT INFORMATION
  Report Type: 
  Country: None (occurrence: None)
  Receive Date: 20120625
  Receipt Date: 20120615
  Transmission Date: 20120825
  Serious: Yes (Life-Threatening, Hospitalization, Other)
  Sender: FDA-Public Use
  Company Number: PHHY2012JP047659

PATIENT
  Sex: Female

DRUGS (3)
  1. GILENYA [Suspect]
     Indication: MULTIPLE SCLEROSIS
     Dosage: 0.5 MG, QD
     Route: 048
     Dates: start: 20120411, end: 20120423
  2. STEROIDS NOS [Concomitant]
     Dosage: UNK UKN, UNK
  3. INTERFERON [Concomitant]
     Dosage: UNK UKN, UNK
     Route: 051

REACTIONS (11)
  - HEPATITIS [None]
  - WHITE BLOOD CELL COUNT DECREASED [None]
  - BLOOD ALKALINE PHOSPHATASE INCREASED [None]
  - MONOCYTE PERCENTAGE INCREASED [None]
  - PROTHROMBIN TIME PROLONGED [None]
  - LYMPHOCYTE PERCENTAGE DECREASED [None]
  - HEPATIC FUNCTION ABNORMAL [None]
  - AMMONIA INCREASED [None]
  - ALANINE AMINOTRANSFERASE INCREASED [None]
  - ASPARTATE AMINOTRANSFERASE INCREASED [None]
  - BLOOD LACTATE DEHYDROGENASE INCREASED [None]
